FAERS Safety Report 11852595 (Version 1)
Quarter: 2015Q4

REPORT INFORMATION
  Report Type: Spontaneous
  Country: US (occurrence: US)
  Receive Date: 20151218
  Receipt Date: 20151218
  Transmission Date: 20160305
  Serious: Yes (Other)
  Sender: FDA-Public Use
  Company Number: US-LPDUSPRD-20151030

PATIENT
  Age: 17 Year
  Sex: Female

DRUGS (2)
  1. OLANZAPINE FOR INJECTION (0517-0955-01) [Suspect]
     Active Substance: OLANZAPINE
     Dosage: DOSE UNKNOWN
     Route: 065
  2. PHENELZINE [Concomitant]
     Active Substance: PHENELZINE
     Dosage: DOSE UNKNOWN
     Route: 065

REACTIONS (4)
  - Nightmare [Unknown]
  - Agitation [Unknown]
  - Myoclonus [Unknown]
  - Anxiety [Unknown]
